FAERS Safety Report 6052521-6 (Version None)
Quarter: 2009Q1

REPORT INFORMATION
  Report Type: 
  Country: None (occurrence: None)
  Receive Date: 20090121
  Receipt Date: 20090113
  Transmission Date: 20090719
  Serious: Yes (Other)
  Sender: FDA-Public Use
  Company Number: 2008SP023885

PATIENT
  Age: 35 Year
  Sex: Female

DRUGS (1)
  1. MIRALAX [Suspect]
     Indication: CONSTIPATION
     Dosage: 17 GM; PO
     Route: 048
     Dates: start: 20080701

REACTIONS (1)
  - RECTAL HAEMORRHAGE [None]
